FAERS Safety Report 6116378-7 (Version None)
Quarter: 2009Q1

REPORT INFORMATION
  Report Type: 
  Country: None (occurrence: None)
  Receive Date: 20090314
  Receipt Date: 20081222
  Transmission Date: 20090719
  Serious: No
  Sender: FDA-Public Use
  Company Number: US-ABBOTT-08P-163-0492054-00

PATIENT
  Sex: Female
  Weight: 90.8 kg

DRUGS (7)
  1. HUMIRA [Suspect]
     Indication: RHEUMATOID ARTHRITIS
     Dates: start: 20080915
  2. ULTRAM [Concomitant]
     Indication: ARTHRALGIA
     Route: 048
  3. PREDNISONE [Concomitant]
     Indication: RHEUMATOID ARTHRITIS
     Route: 048
  4. WELLBUTRIN XL [Concomitant]
     Indication: DEPRESSION
     Route: 048
  5. ALPRAZOLAM [Concomitant]
     Indication: ANXIETY
     Route: 048
  6. PROPOXYPHENE-N [Concomitant]
     Indication: ARTHRALGIA
     Route: 048
  7. TRIAZOLAM [Concomitant]
     Indication: INSOMNIA
     Route: 048

REACTIONS (7)
  - ABDOMINAL DISCOMFORT [None]
  - CHEST PAIN [None]
  - CRYING [None]
  - DIARRHOEA [None]
  - DISEASE RECURRENCE [None]
  - NAUSEA [None]
  - VOMITING [None]
